FAERS Safety Report 8219238-0 (Version None)
Quarter: 2012Q1

REPORT INFORMATION
  Report Type: 
  Country: None (occurrence: None)
  Receive Date: 20120319
  Receipt Date: 20120306
  Transmission Date: 20120608
  Serious: Yes (Hospitalization)
  Sender: FDA-Public Use
  Company Number: US-ELI_LILLY_AND_COMPANY-US201203004864

PATIENT

DRUGS (2)
  1. LEVOTHYROXINE SODIUM [Concomitant]
     Route: 064
  2. CYMBALTA [Suspect]
     Dosage: 60 MG, UNK
     Route: 064

REACTIONS (2)
  - FOETAL EXPOSURE DURING PREGNANCY [None]
  - PREMATURE BABY [None]
